FAERS Safety Report 8563888 (Version 2)
Quarter: 2012Q4

REPORT INFORMATION
  Report Type: 
  Country: ES (occurrence: FR)
  Receive Date: 20120515
  Receipt Date: 20121212
  Transmission Date: 20130627
  Serious: Yes (Hospitalization)
  Sender: FDA-Public Use
  Company Number: FR-ELI_LILLY_AND_COMPANY-FR201205001565

PATIENT
  Age: 75 Year
  Sex: Female
  Weight: 75.5 kg

DRUGS (3)
  1. FORSTEO [Suspect]
     Indication: OSTEOPOROSIS
     Dosage: 20 ug, qd
     Route: 058
     Dates: start: 20111203, end: 20120607
  2. DAFLON                             /00426001/ [Concomitant]
     Dosage: UNK
  3. KARAYA BISMUTH [Concomitant]
     Dosage: UNK

REACTIONS (3)
  - Foot fracture [Recovered/Resolved]
  - Fall [Recovered/Resolved]
  - Pain in extremity [Recovered/Resolved]
